FAERS Safety Report 5133888-X (Version None)
Quarter: 2006Q4

REPORT INFORMATION
  Report Type: 
  Country: None (occurrence: None)
  Receive Date: 20061023
  Receipt Date: 20061023
  Transmission Date: 20070319
  Serious: No
  Sender: FDA-Public Use
  Company Number: None

PATIENT
  Sex: Male
  Weight: 80 kg

DRUGS (2)
  1. ZYPREXA [Suspect]
     Indication: BIPOLAR DISORDER
     Dosage: 10MG ONCE A DAY PO
     Route: 048
     Dates: start: 20060908, end: 20060909
  2. ZYPREXA [Suspect]
     Indication: MANIA
     Dosage: 10MG ONCE A DAY PO
     Route: 048
     Dates: start: 20060908, end: 20060909

REACTIONS (10)
  - ABASIA [None]
  - ARTHRALGIA [None]
  - ASTHENIA [None]
  - BEDRIDDEN [None]
  - CEREBROVASCULAR DISORDER [None]
  - DEPRESSION [None]
  - GAIT DISTURBANCE [None]
  - OEDEMA PERIPHERAL [None]
  - SKIN REACTION [None]
  - VASCULITIS [None]
